FAERS Safety Report 9039952 (Version 2)
Quarter: 2013Q2

REPORT INFORMATION
  Report Type: Spontaneous
  Country: US (occurrence: US)
  Receive Date: 20130130
  Receipt Date: 20130422
  Transmission Date: 20140414
  Serious: No
  Sender: FDA-Public Use
  Company Number: US-BIOGENIDEC-2013BI006631

PATIENT
  Sex: Female

DRUGS (1)
  1. AVONEX [Suspect]
     Indication: MULTIPLE SCLEROSIS
     Route: 030
     Dates: start: 20121116

REACTIONS (13)
  - Skin disorder [Not Recovered/Not Resolved]
  - Back pain [Unknown]
  - Dysarthria [Recovered/Resolved]
  - VIIth nerve paralysis [Recovered/Resolved]
  - Constipation [Recovered/Resolved]
  - Dizziness [Unknown]
  - Blood potassium decreased [Unknown]
  - Nervousness [Not Recovered/Not Resolved]
  - Fatigue [Unknown]
  - Depressed mood [Unknown]
  - Neck pain [Unknown]
  - Asthenia [Unknown]
  - Pain [Not Recovered/Not Resolved]
